FAERS Safety Report 5245686-7 (Version None)
Quarter: 2007Q1

REPORT INFORMATION
  Report Type: 
  Country: None (occurrence: None)
  Receive Date: 20070216
  Receipt Date: 20070205
  Transmission Date: 20070707
  Serious: Yes (Other)
  Sender: FDA-Public Use
  Company Number: SPV1-2007-00601

PATIENT
  Sex: Female

DRUGS (1)
  1. ADDERALL (AMPHETAMINE ASPARTATE, AMPHETAMINE SULFATE, DEXTRPAMPHETAMIN [Suspect]

REACTIONS (8)
  - APPETITE DISORDER [None]
  - ARTHRALGIA [None]
  - DISTURBANCE IN ATTENTION [None]
  - DRUG ABUSER [None]
  - DRUG DEPENDENCE [None]
  - DYSGRAPHIA [None]
  - INSOMNIA [None]
  - MUSCLE SPASMS [None]
